FAERS Safety Report 8317251-6 (Version None)
Quarter: 2012Q2

REPORT INFORMATION
  Report Type: 
  Country: None (occurrence: None)
  Receive Date: 20120425
  Receipt Date: 20120417
  Transmission Date: 20120825
  Serious: Yes (Disabling, Other)
  Sender: FDA-Public Use
  Company Number: 2012SP016464

PATIENT
  Age: 53 Year
  Sex: Male
  Weight: 74 kg

DRUGS (6)
  1. CELESTAMINE TAB [Suspect]
     Indication: SINUSITIS
     Dosage: 1 DF;QD;PO
     Route: 048
     Dates: start: 20120101, end: 20120223
  2. ZESULAN (MEQUITAZINE) [Suspect]
     Indication: SINUSITIS
     Dosage: 3 MG;BID;PO
     Route: 048
     Dates: start: 20120101, end: 20120223
  3. REBAMIPIDE (REBAMIPIDE) [Suspect]
     Indication: SINUSITIS
     Dosage: 100 MG;BID;PO
     Route: 048
     Dates: start: 20120101, end: 20120223
  4. ACETAMINOPHEN [Suspect]
     Indication: SINUSITIS
     Dosage: 200 MG;BID;PO
     Route: 048
     Dates: start: 20120101, end: 20120223
  5. SWORD (PRULIFLOXACIN) [Suspect]
     Indication: SINUSITIS
     Dosage: 200 MG;BID;PO
     Route: 048
     Dates: start: 20120101, end: 20120223
  6. BRECRUS (TRANILAST) [Suspect]
     Indication: SINUSITIS
     Dosage: 100 MG;BID;PO
     Route: 048
     Dates: start: 20120101, end: 20120223

REACTIONS (13)
  - JAUNDICE [None]
  - BLOOD ALKALINE PHOSPHATASE INCREASED [None]
  - LIVER DISORDER [None]
  - PRURITUS GENERALISED [None]
  - HEPATIC FUNCTION ABNORMAL [None]
  - ALANINE AMINOTRANSFERASE INCREASED [None]
  - BLOOD BILIRUBIN INCREASED [None]
  - HAEMANGIOMA OF LIVER [None]
  - CHOLELITHIASIS [None]
  - ABDOMINAL DISTENSION [None]
  - BILIARY DILATATION [None]
  - ASPARTATE AMINOTRANSFERASE INCREASED [None]
  - GAMMA-GLUTAMYLTRANSFERASE INCREASED [None]
